FAERS Safety Report 24925622 (Version 2)
Quarter: 2025Q1

REPORT INFORMATION
  Report Type: Report from Study
  Country: US (occurrence: US)
  Receive Date: 20250204
  Receipt Date: 20250214
  Transmission Date: 20250409
  Serious: Yes (Hospitalization, Other)
  Sender: ABBVIE
  Company Number: US-ABBVIE-6113504

PATIENT
  Age: 76 Year
  Sex: Female
  Weight: 68.492 kg

DRUGS (3)
  1. RINVOQ [Suspect]
     Active Substance: UPADACITINIB
     Indication: Rheumatoid arthritis
     Dosage: 15 MILLIGRAM
     Route: 048
     Dates: start: 202404
  2. RINVOQ [Suspect]
     Active Substance: UPADACITINIB
     Indication: Rheumatoid arthritis
     Dosage: 15 MILLIGRAM
     Route: 048
     Dates: start: 2019, end: 202312
  3. PREDNISONE [Concomitant]
     Active Substance: PREDNISONE
     Indication: Rheumatoid arthritis

REACTIONS (4)
  - Ovarian cancer [Recovered/Resolved]
  - Neuropathy peripheral [Recovering/Resolving]
  - Peroneal nerve palsy [Not Recovered/Not Resolved]
  - Abdominal neoplasm [Unknown]

NARRATIVE: CASE EVENT DATE: 20231201
